FAERS Safety Report 19901838 (Version 2)
Quarter: 2021Q4

REPORT INFORMATION
  Report Type: Spontaneous
  Country: DE (occurrence: DE)
  Receive Date: 20210930
  Receipt Date: 20211012
  Transmission Date: 20220304
  Serious: Yes (Hospitalization)
  Sender: FDA-Public Use
  Company Number: DE-EXELIXIS-CABO-21040533

PATIENT
  Age: 29 Year
  Sex: Female

DRUGS (5)
  1. EVEROLIMUS [Suspect]
     Active Substance: EVEROLIMUS
     Indication: Papillary renal cell carcinoma
     Dosage: 05 MG, QD
     Dates: start: 20210210
  2. CABOMETYX [Suspect]
     Active Substance: CABOZANTINIB S-MALATE
     Indication: Papillary renal cell carcinoma
     Dosage: 60 MG, QD
     Route: 065
     Dates: start: 202009
  3. CABOMETYX [Suspect]
     Active Substance: CABOZANTINIB S-MALATE
     Dosage: 40 MG, QD
     Route: 065
     Dates: start: 202012, end: 202012
  4. CABOMETYX [Suspect]
     Active Substance: CABOZANTINIB S-MALATE
     Dosage: 40 MILLIGRAM, QD
     Route: 065
     Dates: end: 20210210
  5. LENVATINIB [Suspect]
     Active Substance: LENVATINIB
     Indication: Papillary renal cell carcinoma
     Dosage: 18 MG, QD
     Dates: start: 20210210

REACTIONS (5)
  - Liver function test increased [Unknown]
  - General physical health deterioration [Unknown]
  - Hepatotoxicity [Unknown]
  - Diarrhoea [Unknown]
  - Off label use [Unknown]
